FAERS Safety Report 22247880 (Version 2)
Quarter: 2023Q4

REPORT INFORMATION
  Report Type: Spontaneous
  Country: US (occurrence: US)
  Receive Date: 20230425
  Receipt Date: 20231109
  Transmission Date: 20240110
  Serious: Yes (Death, Other)
  Sender: FDA-Public Use
  Company Number: US-SA-SAC20230421000841

PATIENT
  Age: 80 Year
  Sex: Male

DRUGS (1)
  1. GOLD BOND MEDICATED ORIGINAL STRENGTH BODY [Suspect]
     Active Substance: MENTHOL
     Indication: Product used for unknown indication
     Dosage: UNK

REACTIONS (12)
  - Pericardial mesothelioma malignant [Fatal]
  - Exposure to chemical pollution [Fatal]
  - Pain [Unknown]
  - Discomfort [Unknown]
  - Weight decreased [Unknown]
  - Decreased appetite [Unknown]
  - Fatigue [Unknown]
  - Lethargy [Unknown]
  - Somnolence [Unknown]
  - Dyspnoea [Unknown]
  - Dysphagia [Unknown]
  - Emotional distress [Unknown]

NARRATIVE: CASE EVENT DATE: 20221220
